FAERS Safety Report 8121729-8 (Version None)
Quarter: 2012Q1

REPORT INFORMATION
  Report Type: 
  Country: None (occurrence: None)
  Receive Date: 20120207
  Receipt Date: 20120207
  Transmission Date: 20120608
  Serious: Yes (Hospitalization)
  Sender: FDA-Public Use
  Company Number: None

PATIENT
  Age: 56 Year
  Sex: Male
  Weight: 77.1115 kg

DRUGS (2)
  1. METHYLPREDNISOLONE ACETATE [Suspect]
     Dosage: 4 MG 1-4 DAILY
     Dates: start: 20120112, end: 20120119
  2. GABAPENTIN [Suspect]
     Dosage: 300MG 1 DAILY
     Dates: start: 20120109, end: 20120111

REACTIONS (10)
  - OEDEMA PERIPHERAL [None]
  - PRURITUS [None]
  - DIZZINESS [None]
  - EYE SWELLING [None]
  - HAIR DISORDER [None]
  - SWELLING [None]
  - LYMPHADENOPATHY [None]
  - URTICARIA [None]
  - HYPOAESTHESIA [None]
  - HEADACHE [None]
